FAERS Safety Report 9749223 (Version 1)
Quarter: 2013Q4

REPORT INFORMATION
  Report Type: Spontaneous
  Country: US (occurrence: US)
  Receive Date: 20131212
  Receipt Date: 20131212
  Transmission Date: 20140711
  Serious: No
  Sender: FDA-Public Use
  Company Number: US-INCYTE CORPORATION-2013IN002500

PATIENT
  Sex: Male

DRUGS (4)
  1. JAKAFI [Suspect]
     Indication: MYELOFIBROSIS
     Dosage: 10 MG, BID
     Route: 048
  2. ALLOPURINOL [Concomitant]
  3. LEVOTHYROXINE [Concomitant]
  4. DEBACTEROL SWAB [Concomitant]

REACTIONS (1)
  - Mouth ulceration [Unknown]
